FAERS Safety Report 25663589 (Version 1)
Quarter: 2025Q3

REPORT INFORMATION
  Report Type: Spontaneous
  Country: EU (occurrence: EU)
  Receive Date: 20250811
  Receipt Date: 20250811
  Transmission Date: 20251020
  Serious: Yes (Life-Threatening, Other)
  Sender: CELLTRION
  Company Number: EU-ROCHE-10000295783

PATIENT

DRUGS (1)
  1. RITUXIMAB [Suspect]
     Active Substance: RITUXIMAB
     Indication: Encephalitis autoimmune

REACTIONS (6)
  - Anaphylactic shock [Unknown]
  - Mast cell activation syndrome [Unknown]
  - B-lymphocyte count decreased [Unknown]
  - Anaphylactic reaction [Unknown]
  - Sensory disturbance [Unknown]
  - Intentional product use issue [Unknown]
